FAERS Safety Report 22962262 (Version 2)
Quarter: 2023Q4

REPORT INFORMATION
  Report Type: Report from Study
  Country: US (occurrence: US)
  Receive Date: 20230920
  Receipt Date: 20231020
  Transmission Date: 20240110
  Serious: Yes (Other)
  Sender: FDA-Public Use
  Company Number: US-ABBVIE-5413621

PATIENT
  Age: 64 Year
  Sex: Male

DRUGS (2)
  1. VENCLEXTA [Suspect]
     Active Substance: VENETOCLAX
     Indication: Acute myeloid leukaemia
     Dosage: TAKE 1 TABLET BY MOUTH IN THE MORNING WITH FOOD AND WATER?FORM STRENGTH: 50MG
     Route: 048
  2. VENCLEXTA [Suspect]
     Active Substance: VENETOCLAX
     Indication: Acute myeloid leukaemia
     Dosage: TAKE 1 TABLET BY MOUTH IN THE MORNING WITH FOOD AND WATER?FORM STRENGTH: 50MG
     Route: 048

REACTIONS (4)
  - Surgery [Recovering/Resolving]
  - Drug interaction [Unknown]
  - Surgery [Unknown]
  - Unevaluable event [Unknown]

NARRATIVE: CASE EVENT DATE: 20231001
